FAERS Safety Report 8806674 (Version 1)
Quarter: 2012Q4

REPORT INFORMATION
  Report Type: Report from Study
  Country: DE (occurrence: DE)
  Receive Date: 20120925
  Receipt Date: 20120925
  Transmission Date: 20130627
  Serious: Yes (Death)
  Sender: FDA-Public Use
  Company Number: PHHY2012DE081245

PATIENT
  Sex: Female
  Weight: 65 kg

DRUGS (2)
  1. ZOLEDRONATE [Suspect]
     Indication: PROPHYLAXIS
     Dosage: 4 mg, every 4 weeks
     Route: 042
     Dates: start: 20110630, end: 20120320
  2. NAVELBINE [Concomitant]
     Dates: start: 20110906, end: 20111108

REACTIONS (1)
  - Lung carcinoma cell type unspecified stage IV [Fatal]
